FAERS Safety Report 4338705-3 (Version None)
Quarter: 2004Q2

REPORT INFORMATION
  Report Type: 
  Country: None (occurrence: None)
  Receive Date: 20040409
  Receipt Date: 20040402
  Transmission Date: 20050107
  Serious: Yes (Hospitalization)
  Sender: FDA-Public Use
  Company Number: US-SHR-04-023475

PATIENT
  Age: 39 Year
  Sex: Female

DRUGS (1)
  1. LEUKINE [Suspect]
     Indication: MALIGNANT MELANOMA
     Dosage: 2 OR 3  14-DAYS CYCLES
     Dates: end: 20040302

REACTIONS (1)
  - OESOPHAGEAL SPASM [None]
